FAERS Safety Report 7717636-2 (Version None)
Quarter: 2011Q3

REPORT INFORMATION
  Report Type: 
  Country: None (occurrence: None)
  Receive Date: 20110830
  Receipt Date: 20110830
  Transmission Date: 20111222
  Serious: Yes (Life-Threatening, Hospitalization)
  Sender: FDA-Public Use
  Company Number: None

PATIENT
  Age: 83 Year
  Sex: Female
  Weight: 78 kg

DRUGS (1)
  1. METHOTREXATE [Suspect]
     Indication: ARTHRITIS
     Dosage: 10MG
     Route: 048
     Dates: start: 20110418, end: 20110509

REACTIONS (4)
  - PNEUMONITIS [None]
  - HYPOXIA [None]
  - NO THERAPEUTIC RESPONSE [None]
  - ASTHENIA [None]
